FAERS Safety Report 8815435 (Version 3)
Quarter: 2012Q4

REPORT INFORMATION
  Report Type: 
  Country: US (occurrence: US)
  Receive Date: 20120928
  Receipt Date: 20121008
  Transmission Date: 20130627
  Serious: No
  Sender: FDA-Public Use
  Company Number: US-ASTRAZENECA-2012SE72955

PATIENT
  Sex: Male

DRUGS (11)
  1. SYMBICORT PMDI [Suspect]
     Indication: ASTHMA
     Dosage: 160/4.5 MCG, 3 TIMES (5 PUFFS)
     Route: 055
     Dates: start: 20120916, end: 20120918
  2. SYMBICORT PMDI [Suspect]
     Indication: ASTHMA
     Dosage: 160/4.5 MCG, 3 TIMES (4 PUFFS)
     Route: 055
     Dates: start: 20120917, end: 20120918
  3. SYMBICORT PMDI [Suspect]
     Indication: ASTHMA
     Dosage: 160/4.5 MCG, 3 DOSES (6 PUFFS)
     Route: 055
     Dates: start: 20120919, end: 20120920
  4. SYMBICORT PMDI [Suspect]
     Indication: ASTHMA
     Dosage: 160/4.5 MCG, 3 TIMES (6 PUFFS)
     Route: 055
     Dates: start: 20120921, end: 20120922
  5. SYMBICORT PMDI [Suspect]
     Indication: ASTHMA
     Dosage: 160/4.5 MCG, 2 TIMES (4 PUFFS)
     Route: 055
     Dates: start: 20120923, end: 20120924
  6. SYMBICORT PMDI [Suspect]
     Indication: ASTHMA
     Dosage: 160/4.5 MCG, 2 TIMES (4 PUFFS)
     Route: 055
     Dates: start: 20120924, end: 20120925
  7. SYMBICORT PMDI [Suspect]
     Indication: ASTHMA
     Dosage: 160/4.5 MCG, 2 TIMES (3 PUFFS)
     Route: 055
     Dates: start: 20120925, end: 20120926
  8. SYMBICORT PMDI [Suspect]
     Indication: ASTHMA
     Dosage: 160/4.5 MCG, 3 TIMES (4 PUFFS)
     Route: 055
     Dates: start: 20120926, end: 20120927
  9. SYMBICORT PMDI [Suspect]
     Indication: ASTHMA
     Dosage: 160/4.5 MCG, 3 TIMES (4 PUFFS)
     Route: 055
     Dates: start: 20120927, end: 20120928
  10. SYMBICORT PMDI [Suspect]
     Indication: ASTHMA
     Dosage: 160/4.5 MCG, 2 TIMES (4 PUFFS)
     Route: 055
     Dates: start: 20120928, end: 20120929
  11. NASONEX [Concomitant]
     Indication: ASTHMA

REACTIONS (4)
  - Asthma [Unknown]
  - Decreased activity [Unknown]
  - Sleep disorder due to general medical condition, insomnia type [Unknown]
  - Intentional drug misuse [Unknown]
